FAERS Safety Report 13258293 (Version 3)
Quarter: 2017Q3

REPORT INFORMATION
  Report Type: Report from Study
  Country: None (occurrence: US)
  Receive Date: 20170222
  Receipt Date: 20170809
  Transmission Date: 20171127
  Serious: Yes (Other)
  Sender: FDA-Public Use
  Company Number: US-ABBVIE-17K-163-1879713-00

PATIENT
  Sex: Male

DRUGS (1)
  1. HUMIRA [Suspect]
     Active Substance: ADALIMUMAB
     Indication: CROHN^S DISEASE
     Route: 058

REACTIONS (9)
  - Dyspnoea [Unknown]
  - Pulmonary pain [Unknown]
  - Anaemia [Unknown]
  - Pleurisy [Unknown]
  - Memory impairment [Not Recovered/Not Resolved]
  - Type 2 diabetes mellitus [Not Recovered/Not Resolved]
  - Ammonia abnormal [Unknown]
  - Hepatic cirrhosis [Not Recovered/Not Resolved]
  - Intestinal ulcer [Unknown]

NARRATIVE: CASE EVENT DATE: 2013
